FAERS Safety Report 5608188-1 (Version None)
Quarter: 2008Q1

REPORT INFORMATION
  Report Type: 
  Country: None (occurrence: None)
  Receive Date: 20080130
  Receipt Date: 20080117
  Transmission Date: 20080703
  Serious: Yes (Other)
  Sender: FDA-Public Use
  Company Number: US-ELI_LILLY_AND_COMPANY-US200801001439

PATIENT
  Sex: Male
  Weight: 77.098 kg

DRUGS (1)
  1. CIALIS [Suspect]
     Indication: ORGANIC ERECTILE DYSFUNCTION
     Dosage: 20 MG, UNK

REACTIONS (3)
  - DEHYDRATION [None]
  - NASOPHARYNGITIS [None]
  - SYNCOPE [None]
